FAERS Safety Report 18108845 (Version 1)
Quarter: 2020Q3

REPORT INFORMATION
  Report Type: Report from Study
  Country: IT (occurrence: IT)
  Receive Date: 20200804
  Receipt Date: 20200804
  Transmission Date: 20201103
  Serious: Yes (Other)
  Sender: FDA-Public Use
  Company Number: IT-TEVA-2020-IT-1808846

PATIENT
  Age: 50 Year
  Sex: Female

DRUGS (2)
  1. PLAUNAC [Concomitant]
     Active Substance: OLMESARTAN MEDOXOMIL
  2. AMOXICILLIN. [Suspect]
     Active Substance: AMOXICILLIN
     Indication: TOOTH ABSCESS
     Dosage: 1000 MG
     Route: 048
     Dates: start: 20200511, end: 20200511

REACTIONS (5)
  - Dermatitis allergic [Recovered/Resolved]
  - Dyspnoea [Recovered/Resolved]
  - Erythema [Recovered/Resolved]
  - Feeling hot [Recovered/Resolved]
  - Periorbital oedema [Recovered/Resolved]

NARRATIVE: CASE EVENT DATE: 20200511
